FAERS Safety Report 11825307 (Version 1)
Quarter: 2015Q4

REPORT INFORMATION
  Report Type: Spontaneous
  Country: US (occurrence: US)
  Receive Date: 20151211
  Receipt Date: 20151211
  Transmission Date: 20160305
  Serious: Yes (Hospitalization, Other)
  Sender: FDA-Public Use
  Company Number: US-ZYDUS-009661

PATIENT
  Age: 24 Year
  Sex: Female

DRUGS (6)
  1. TOPIRAMATE. [Suspect]
     Active Substance: TOPIRAMATE
     Indication: EPILEPSY
  2. MIDAZOLAM [Suspect]
     Active Substance: MIDAZOLAM\MIDAZOLAM HYDROCHLORIDE
     Indication: EPILEPSY
  3. CLOBAZAM [Suspect]
     Active Substance: CLOBAZAM
     Indication: EPILEPSY
  4. PROPOFOL. [Suspect]
     Active Substance: PROPOFOL
     Indication: SEDATION
  5. LEVETIRACETAM. [Suspect]
     Active Substance: LEVETIRACETAM
     Indication: PSYCHOGENIC SEIZURE
  6. PHENYTOIN/PHENYTOIN CALCIUM/PHENYTOIN SODIUM [Suspect]
     Active Substance: PHENYTOIN
     Indication: EPILEPSY

REACTIONS (6)
  - Respiratory depression [None]
  - Encephalitis autoimmune [Unknown]
  - Premature delivery [Unknown]
  - Exposure during pregnancy [Unknown]
  - Neuroleptic malignant syndrome [None]
  - Status epilepticus [None]
